FAERS Safety Report 8584660 (Version 2)
Quarter: 2012Q4

REPORT INFORMATION
  Report Type: 
  Country: US (occurrence: US)
  Receive Date: 20120529
  Receipt Date: 20120927
  Transmission Date: 20130627
  Serious: Yes (Hospitalization, Other)
  Sender: FDA-Public Use
  Company Number: US-ELI_LILLY_AND_COMPANY-US201008001088

PATIENT
  Sex: Female

DRUGS (20)
  1. FORTEO [Suspect]
     Indication: OSTEOPOROSIS
     Dosage: 20 ug, daily (1/D)
     Dates: start: 20091009, end: 20100917
  2. FORTEO [Suspect]
     Dosage: 20 ug, daily (1/D)
     Dates: start: 20091009, end: 20100917
  3. FORTEO [Suspect]
     Dosage: 20 ug, daily (1/D)
     Dates: start: 20091009, end: 20100917
  4. FORTEO [Suspect]
     Dosage: 20 ug, daily (1/D)
     Dates: start: 20111118
  5. VERAPAMIL [Concomitant]
     Dosage: UNK, unknown
  6. GAMMAGARD [Concomitant]
     Indication: IMMUNE SYSTEM DISORDER
     Dosage: UNK, unknown
  7. PEPCID [Concomitant]
     Dosage: UNK, bid
  8. SURFAK [Concomitant]
     Dosage: UNK, bid
  9. OSTEOPOR [Concomitant]
     Indication: HYPERSENSITIVITY
     Dosage: UNK, qd
  10. RESTASIS [Concomitant]
     Indication: EYE DISORDER
     Dosage: UNK, qd
  11. BIAXIN [Concomitant]
     Dosage: UNK, qd
  12. CITRICAL [Concomitant]
     Dosage: UNK, qd
  13. MUCINEX [Concomitant]
     Dosage: UNK, qd
  14. VITAMIN D [Concomitant]
     Dosage: UNK, qd
  15. CLARITIN [Concomitant]
     Dosage: UNK, qd
  16. ASPIRIN [Concomitant]
     Dosage: UNK, qd
  17. IRON [Concomitant]
     Dosage: UNK, qd
  18. LISINOPRIL [Concomitant]
     Dosage: UNK, qd
  19. VITAMINS [Concomitant]
     Dosage: UNK, qd
  20. BIOTIN [Concomitant]
     Dosage: UNK

REACTIONS (8)
  - Anxiety [Unknown]
  - Vaginal cyst [Not Recovered/Not Resolved]
  - Infection [Recovering/Resolving]
  - Tooth fracture [Unknown]
  - Gingival discolouration [Not Recovered/Not Resolved]
  - Gingival abscess [Unknown]
  - Oral pain [Unknown]
  - Neoplasm [Unknown]
